FAERS Safety Report 16441062 (Version 1)
Quarter: 2019Q2

REPORT INFORMATION
  Report Type: Report from Study
  Country: None (occurrence: KE)
  Receive Date: 20190617
  Receipt Date: 20190617
  Transmission Date: 20190711
  Serious: Yes (Other)
  Sender: FDA-Public Use
  Company Number: KE-BAUSCH-BL-2019-016543

PATIENT
  Age: 3 Year
  Sex: Female

DRUGS (4)
  1. AMPICILLIN [Concomitant]
     Active Substance: AMPICILLIN
     Indication: SEPTIC SHOCK
  2. GENTAMICIN. [Suspect]
     Active Substance: GENTAMICIN
     Indication: SEPTIC SHOCK
  3. GENTAMICIN. [Suspect]
     Active Substance: GENTAMICIN
     Indication: PNEUMONIA
     Route: 065
  4. AMPICILLIN [Concomitant]
     Active Substance: AMPICILLIN
     Indication: PNEUMONIA

REACTIONS (1)
  - Drug resistance [Unknown]
